FAERS Safety Report 9587413 (Version 2)
Quarter: 2013Q4

REPORT INFORMATION
  Report Type: Spontaneous
  Country: JP (occurrence: JP)
  Receive Date: 20131003
  Receipt Date: 20131016
  Transmission Date: 20140711
  Serious: Yes (Hospitalization, Disabling, Other)
  Sender: FDA-Public Use
  Company Number: JP-ASTRAZENECA-2013SE72180

PATIENT
  Age: 59 Year
  Sex: Female

DRUGS (3)
  1. FASLODEX [Suspect]
     Indication: BREAST CANCER
     Route: 030
     Dates: start: 201205
  2. ZOLEDRONIC ACID HYDRATE [Concomitant]
     Dosage: DOSE UNKNOWN
     Route: 065
     Dates: start: 201204
  3. DENOSUMAB(GENETICAL RECOMBINATION) [Concomitant]
     Dosage: DOSE UNKNOWN
     Route: 065
     Dates: start: 201205

REACTIONS (1)
  - Femur fracture [Unknown]
